FAERS Safety Report 9805583 (Version 1)
Quarter: 2014Q1

REPORT INFORMATION
  Report Type: Spontaneous
  Country: US (occurrence: None)
  Receive Date: 20140108
  Receipt Date: 20140108
  Transmission Date: 20141002
  Serious: Yes (Hospitalization)
  Sender: FDA-Public Use
  Company Number: None

PATIENT
  Age: 72 Year
  Sex: Male
  Weight: 101.8 kg

DRUGS (2)
  1. CYTARABINE [Suspect]
     Dates: end: 20120607
  2. DAUNORUBICIN [Suspect]
     Dates: end: 20120603

REACTIONS (6)
  - Cholecystitis [None]
  - Tachypnoea [None]
  - Respiratory distress [None]
  - Atelectasis [None]
  - Pulmonary oedema [None]
  - Postoperative respiratory failure [None]
